FAERS Safety Report 16989419 (Version 3)
Quarter: 2019Q4

REPORT INFORMATION
  Report Type: Spontaneous
  Country: US (occurrence: US)
  Receive Date: 20191104
  Receipt Date: 20191213
  Transmission Date: 20200122
  Serious: No
  Sender: FDA-Public Use
  Company Number: US-PFIZER INC-2019471809

PATIENT
  Age: 81 Year
  Sex: Female
  Weight: 64 kg

DRUGS (3)
  1. XELJANZ XR [Suspect]
     Active Substance: TOFACITINIB CITRATE
     Indication: RHEUMATOID ARTHRITIS
     Dosage: 11 MG, DAILY
     Route: 048
     Dates: start: 20190716, end: 20190930
  2. XELJANZ XR [Suspect]
     Active Substance: TOFACITINIB CITRATE
     Dosage: 11 MG, DAILY
     Route: 048
     Dates: start: 20191011, end: 20191023
  3. METHOTREXATE. [Concomitant]
     Active Substance: METHOTREXATE
     Dosage: UNK

REACTIONS (7)
  - Fatigue [Recovered/Resolved]
  - Asthenia [Unknown]
  - Gait disturbance [Recovered/Resolved]
  - Feeling abnormal [Recovered/Resolved]
  - Insomnia [Not Recovered/Not Resolved]
  - Overweight [Unknown]
  - Musculoskeletal pain [Recovered/Resolved]

NARRATIVE: CASE EVENT DATE: 2019
